FAERS Safety Report 4649629-6 (Version None)
Quarter: 2005Q2

REPORT INFORMATION
  Report Type: 
  Country: None (occurrence: None)
  Receive Date: 20050502
  Receipt Date: 20050118
  Transmission Date: 20051028
  Serious: Yes (Death, Hospitalization)
  Sender: FDA-Public Use
  Company Number: 200510180JP

PATIENT
  Age: 71 Year
  Sex: Male
  Weight: 55 kg

DRUGS (17)
  1. ARAVA [Suspect]
     Indication: RHEUMATOID ARTHRITIS
     Route: 048
     Dates: start: 20031110, end: 20050110
  2. LOXONIN [Concomitant]
     Indication: RHEUMATOID ARTHRITIS
     Route: 048
     Dates: end: 20040516
  3. PREDNISOLONE [Concomitant]
     Indication: RHEUMATOID ARTHRITIS
     Route: 048
     Dates: end: 20050110
  4. CLINORIL [Concomitant]
     Route: 048
     Dates: end: 20050110
  5. MUCOSTA [Concomitant]
     Route: 048
     Dates: end: 20050110
  6. KLARICID [Concomitant]
     Route: 048
     Dates: end: 20050110
  7. MUCOSOLVAN [Concomitant]
     Route: 048
     Dates: end: 20050110
  8. EBRANTIL [Concomitant]
     Route: 048
     Dates: end: 20050110
  9. URALYT [Concomitant]
     Indication: HYPERLACTACIDAEMIA
     Route: 048
     Dates: start: 20041122, end: 20050110
  10. ALOSITOL [Concomitant]
     Indication: HYPERLACTACIDAEMIA
     Route: 048
     Dates: start: 20041122, end: 20050110
  11. KREMEZIN [Concomitant]
     Route: 048
     Dates: start: 20041122, end: 20050110
  12. BIOFERMIN [Concomitant]
     Route: 048
     Dates: start: 20041122, end: 20050110
  13. CEFMETAZON [Concomitant]
     Route: 041
     Dates: start: 20041113, end: 20041119
  14. MARZULENE [Concomitant]
     Dosage: FREQUENCY: AFTER MEALS
     Route: 048
     Dates: start: 20041202, end: 20050110
  15. POLYFUL [Concomitant]
     Dosage: FREQUENCY: AFTER MEALS
     Route: 048
     Dates: start: 20041214, end: 20050110
  16. URSO 250 [Concomitant]
     Dosage: FREQUENCY: AFTER MEALS
     Route: 048
     Dates: start: 20041217, end: 20050110
  17. KALIMATE [Concomitant]
     Indication: HYPERKALAEMIA
     Route: 048
     Dates: start: 20041231, end: 20050105

REACTIONS (21)
  - BLOOD ALKALINE PHOSPHATASE INCREASED [None]
  - BLOOD CHOLESTEROL INCREASED [None]
  - BLOOD CREATINE INCREASED [None]
  - BLOOD CREATININE INCREASED [None]
  - BLOOD GLUCOSE INCREASED [None]
  - BLOOD LACTATE DEHYDROGENASE INCREASED [None]
  - BLOOD POTASSIUM INCREASED [None]
  - BLOOD PRESSURE SYSTOLIC INCREASED [None]
  - BLOOD UREA INCREASED [None]
  - CHOLECYSTITIS [None]
  - CHOLELITHIASIS [None]
  - DISSEMINATED INTRAVASCULAR COAGULATION [None]
  - DUODENAL ULCER [None]
  - EROSIVE OESOPHAGITIS [None]
  - GAMMA-GLUTAMYLTRANSFERASE INCREASED [None]
  - GASTROENTERITIS BACTERIAL [None]
  - GASTROINTESTINAL HAEMORRHAGE [None]
  - PEPTIC ULCER [None]
  - PLATELET COUNT DECREASED [None]
  - PNEUMONIA STAPHYLOCOCCAL [None]
  - SHOCK HAEMORRHAGIC [None]
